FAERS Safety Report 11141799 (Version 2)
Quarter: 2015Q3

REPORT INFORMATION
  Report Type: Spontaneous
  Country: US (occurrence: US)
  Receive Date: 20150527
  Receipt Date: 20150818
  Transmission Date: 20151125
  Serious: No
  Sender: FDA-Public Use
  Company Number: US-PFIZER INC-2015167900

PATIENT
  Age: 49 Year
  Sex: Female
  Weight: 53 kg

DRUGS (4)
  1. SYNTHROID [Concomitant]
     Active Substance: LEVOTHYROXINE SODIUM
     Dosage: 75 ?G, 1X/DAY
     Dates: start: 2012
  2. GABAPENTIN. [Suspect]
     Active Substance: GABAPENTIN
     Indication: ESSENTIAL TREMOR
  3. GABAPENTIN. [Suspect]
     Active Substance: GABAPENTIN
     Indication: VULVOVAGINAL PAIN
  4. GABAPENTIN. [Suspect]
     Active Substance: GABAPENTIN
     Indication: NERVOUS SYSTEM DISORDER
     Dosage: 300 MG, 2X/DAY
     Route: 048
     Dates: start: 2011, end: 201505

REACTIONS (6)
  - Drug intolerance [Unknown]
  - Vision blurred [Recovered/Resolved]
  - Product use issue [Unknown]
  - Impaired driving ability [Unknown]
  - Impaired work ability [Unknown]
  - Somnolence [Recovered/Resolved]

NARRATIVE: CASE EVENT DATE: 2011
